FAERS Safety Report 5137722-3 (Version None)
Quarter: 2006Q4

REPORT INFORMATION
  Report Type: 
  Country: None (occurrence: None)
  Receive Date: 20061030
  Receipt Date: 20051222
  Transmission Date: 20070319
  Serious: No
  Sender: FDA-Public Use
  Company Number: US-GLAXOSMITHKLINE-A0586847A

PATIENT
  Age: 69 Year
  Sex: Female

DRUGS (5)
  1. ADVAIR HFA [Suspect]
     Indication: ASTHMA
     Dosage: 1PUFF TWICE PER DAY
     Route: 055
     Dates: start: 20050801
  2. SPIRIVA [Suspect]
     Indication: ASTHMA
     Dosage: 1CAP PER DAY
     Route: 055
     Dates: start: 20050801
  3. LOTREL [Concomitant]
  4. INDAPAMIDE [Concomitant]
  5. MUCINEX [Concomitant]

REACTIONS (1)
  - ALOPECIA [None]
